FAERS Safety Report 5144413-1 (Version None)
Quarter: 2006Q4

REPORT INFORMATION
  Report Type: 
  Country: None (occurrence: None)
  Receive Date: 20061031
  Receipt Date: 20061018
  Transmission Date: 20070319
  Serious: Yes (Other)
  Sender: FDA-Public Use
  Company Number: 2006121644

PATIENT
  Sex: Female

DRUGS (2)
  1. LYRICA [Suspect]
  2. ANTIBIOTICS (ANTIBIOTICS) [Suspect]

REACTIONS (2)
  - BLOOD CREATININE INCREASED [None]
  - CREATININE RENAL CLEARANCE INCREASED [None]
